FAERS Safety Report 23632749 (Version 2)
Quarter: 2024Q4

REPORT INFORMATION
  Report Type: Report from Study
  Country: US (occurrence: US)
  Receive Date: 20240314
  Receipt Date: 20241018
  Transmission Date: 20250114
  Serious: Yes (Hospitalization)
  Sender: ARGENX BVBA
  Company Number: US-ARGENX-2023-ARGX-US004573

PATIENT

DRUGS (3)
  1. EFGARTIGIMOD ALFA-FCAB [Suspect]
     Active Substance: EFGARTIGIMOD ALFA-FCAB
     Indication: Myasthenia gravis
     Dosage: UNK
     Route: 042
  2. VYVGART HYTRULO [Suspect]
     Active Substance: EFGARTIGIMOD ALFA\HYALURONIDASE-QVFC
     Indication: Myasthenia gravis
     Dosage: UNK
     Route: 058
  3. UNSPECIFIED INGREDIENT [Concomitant]
     Active Substance: UNSPECIFIED INGREDIENT
     Indication: Respiratory syncytial virus immunisation
     Dosage: UNK
     Route: 065

REACTIONS (8)
  - Respiratory syncytial virus infection [Recovering/Resolving]
  - Symptom recurrence [Unknown]
  - Decreased appetite [Unknown]
  - Nasopharyngitis [Unknown]
  - Dyspnoea [Unknown]
  - Fatigue [Unknown]
  - Nasal congestion [Unknown]
  - Bronchitis [Unknown]

NARRATIVE: CASE EVENT DATE: 20231201
